FAERS Safety Report 7439426-0 (Version None)
Quarter: 2011Q2

REPORT INFORMATION
  Report Type: 
  Country: None (occurrence: None)
  Receive Date: 20110427
  Receipt Date: 20110421
  Transmission Date: 20111010
  Serious: Yes (Life-Threatening, Hospitalization, Other)
  Sender: FDA-Public Use
  Company Number: FR-ASTELLAS-2011EU000875

PATIENT
  Sex: Male
  Weight: 75 kg

DRUGS (12)
  1. PROGRAF [Suspect]
     Dosage: 1.5 MG, UNKNOWN/D
     Route: 065
  2. NEXIUM [Concomitant]
     Dosage: 20 MG, UID/QD
     Route: 048
  3. ALLOPURINOL [Concomitant]
     Dosage: 100 MG, UID/QD
     Route: 048
  4. LASIX [Concomitant]
     Dosage: 40 MG, UID/QD
     Route: 048
  5. APROVEL [Concomitant]
     Dosage: 150 MG, UID/QD
     Route: 048
  6. PROGRAF [Suspect]
     Dosage: 1 MG, BID
     Route: 065
     Dates: start: 20110217
  7. CORTISONE [Concomitant]
     Dosage: 5 MG, UNKNOWN/D
     Route: 048
  8. FUMAFER [Concomitant]
     Dosage: 1 DF, UID/QD
     Route: 048
  9. PROGRAF [Suspect]
     Indication: HEART TRANSPLANT
     Dosage: 1 MG, BID
     Route: 065
  10. SPECIAFOLDINE [Concomitant]
     Dosage: 5 MG, UID/QD
     Route: 048
  11. ELISOR [Concomitant]
     Dosage: 40 MG, UID/QD
     Route: 065
  12. CERTICAN [Concomitant]
     Dosage: 0.75 MG, BID
     Route: 048

REACTIONS (8)
  - H1N1 INFLUENZA [None]
  - RESPIRATORY FAILURE [None]
  - MULTI-ORGAN FAILURE [None]
  - RENAL FAILURE ACUTE [None]
  - LOBAR PNEUMONIA [None]
  - DIARRHOEA [None]
  - PNEUMOCOCCAL SEPSIS [None]
  - SEPTIC SHOCK [None]
